FAERS Safety Report 25926893 (Version 1)
Quarter: 2025Q4

REPORT INFORMATION
  Report Type: Spontaneous
  Country: TR (occurrence: TR)
  Receive Date: 20251015
  Receipt Date: 20251015
  Transmission Date: 20260118
  Serious: Yes (Death, Other)
  Sender: B. BRAUN MEDICAL INC.
  Company Number: TR-B. Braun Medical Inc.-TR-BBM-202503979

PATIENT
  Age: 11 Year
  Sex: Female

DRUGS (3)
  1. MEROPENEM [Suspect]
     Active Substance: MEROPENEM
     Indication: Sepsis
     Dosage: 60 MG/KG/G
  2. VANCOMYCIN [Suspect]
     Active Substance: VANCOMYCIN
     Dosage: 40 MG/KG/G
  3. CEFOTAXIME [Suspect]
     Active Substance: CEFOTAXIME SODIUM
     Dosage: 3 X 150 MG/KG/D

REACTIONS (2)
  - Acute kidney injury [Fatal]
  - Superinfection bacterial [Fatal]
